FAERS Safety Report 24020832 (Version 1)
Quarter: 2024Q2

REPORT INFORMATION
  Report Type: Spontaneous
  Country: AU (occurrence: AU)
  Receive Date: 20240627
  Receipt Date: 20240627
  Transmission Date: 20240715
  Serious: Yes (Other)
  Sender: FDA-Public Use
  Company Number: AU-AMERICAN REGENT INC-2024002413

PATIENT
  Sex: Female

DRUGS (1)
  1. FERINJECT [Suspect]
     Active Substance: FERRIC CARBOXYMALTOSE
     Indication: Product used for unknown indication
     Dosage: 500 MG IN 250 ML SALINE OVER 15 MINUTES (500 MG)
     Dates: start: 20240521, end: 20240521

REACTIONS (14)
  - Hepatitis [Unknown]
  - Infection [Not Recovered/Not Resolved]
  - Hyperhidrosis [Unknown]
  - Body temperature decreased [Unknown]
  - Arthritis [Not Recovered/Not Resolved]
  - Serum ferritin increased [Unknown]
  - Decreased immune responsiveness [Not Recovered/Not Resolved]
  - Insomnia [Unknown]
  - Asthenia [Unknown]
  - Oropharyngeal pain [Unknown]
  - Pain [Unknown]
  - Illness [Unknown]
  - Chills [Unknown]
  - Medication error [Unknown]

NARRATIVE: CASE EVENT DATE: 20240101
